FAERS Safety Report 7207877-5 (Version None)
Quarter: 2010Q4

REPORT INFORMATION
  Report Type: 
  Country: None (occurrence: None)
  Receive Date: 20101221
  Receipt Date: 20101028
  Transmission Date: 20110411
  Serious: Yes (Death, Hospitalization)
  Sender: FDA-Public Use
  Company Number: IT-021370

PATIENT
  Age: 70 Year
  Sex: Male

DRUGS (6)
  1. (MELPHALAN) [Suspect]
     Indication: MULTIPLE MYELOMA
     Dosage: 0.18 MG/KG, 0.18 MG/KG QD,
     Dates: start: 20081103, end: 20081106
  2. LENALIDOMIDE [Suspect]
     Indication: MULTIPLE MYELOMA
     Dosage: CAPSULE, 3520.0 MG FOR 17 CYCLES ORAL
     Route: 048
     Dates: start: 20090803, end: 20091030
  3. PREDNISONE [Suspect]
     Indication: MULTIPLE MYELOMA
     Dosage: 2 MG/KG, 2 MG/KG OD
     Dates: start: 20081103, end: 20081106
  4. (PIPERACILLIN AND ENZYME INHIBITOR) [Concomitant]
  5. OMEPRAZOLE [Concomitant]
  6. (OTHER BLOOD PRODUCTS) [Concomitant]

REACTIONS (9)
  - ACUTE LEUKAEMIA [None]
  - ACUTE MYELOID LEUKAEMIA [None]
  - BRONCHOPNEUMONIA [None]
  - CARDIAC ARREST [None]
  - ELECTROCARDIOGRAM ABNORMAL [None]
  - INCORRECT DOSE ADMINISTERED [None]
  - MYELODYSPLASTIC SYNDROME [None]
  - PLEURAL EFFUSION [None]
  - PYREXIA [None]
